FAERS Safety Report 7279254-2 (Version None)
Quarter: 2011Q1

REPORT INFORMATION
  Report Type: 
  Country: None (occurrence: None)
  Receive Date: 20110207
  Receipt Date: 20110203
  Transmission Date: 20110831
  Serious: Yes (Other)
  Sender: FDA-Public Use
  Company Number: CO-PFIZER INC-2011025931

PATIENT
  Age: 58 Year
  Sex: Male

DRUGS (4)
  1. METFORMIN [Concomitant]
     Indication: DIABETES MELLITUS
     Dosage: 850 MG, 1X/DAY
     Route: 048
  2. SUTENT [Suspect]
     Indication: RENAL CANCER
     Dosage: 50 MG, 1X/DAY
     Route: 048
  3. GLIBENCLAMIDE [Concomitant]
     Indication: DIABETES MELLITUS
     Dosage: 50 MG, 1X/DAY
     Route: 048
  4. ASCORBIC ACID [Concomitant]
     Dosage: EVERY 8 HOURS

REACTIONS (5)
  - DECREASED APPETITE [None]
  - ARTHRALGIA [None]
  - LARYNGEAL OEDEMA [None]
  - PALLOR [None]
  - OROPHARYNGEAL PLAQUE [None]
